FAERS Safety Report 8087521-8 (Version None)
Quarter: 2012Q1

REPORT INFORMATION
  Report Type: 
  Country: None (occurrence: None)
  Receive Date: 20120128
  Receipt Date: 20110406
  Transmission Date: 20120608
  Serious: No
  Sender: FDA-Public Use
  Company Number: US-ABBOTT-11P-163-0717688-00

PATIENT
  Sex: Male
  Weight: 93.07 kg

DRUGS (4)
  1. HUMIRA [Suspect]
     Indication: PSORIASIS
     Route: 058
     Dates: start: 20090101, end: 20100101
  2. FAMICLOVIR [Concomitant]
     Indication: HERPES VIRUS INFECTION
  3. HUMIRA [Suspect]
     Indication: PSORIATIC ARTHROPATHY
     Dosage: OFF MEDICATION 3 WKS DUE TO BRONCHITIS
     Route: 058
     Dates: start: 20100101
  4. IBUPROFEN [Concomitant]
     Indication: PSORIATIC ARTHROPATHY
     Route: 048

REACTIONS (7)
  - HYPERTENSION [None]
  - JOINT SWELLING [None]
  - PSORIATIC ARTHROPATHY [None]
  - ARTHRALGIA [None]
  - NASOPHARYNGITIS [None]
  - UPPER RESPIRATORY TRACT INFECTION [None]
  - BRONCHITIS [None]
